FAERS Safety Report 20848918 (Version 1)
Quarter: 2022Q2

REPORT INFORMATION
  Report Type: Spontaneous
  Country: US (occurrence: US)
  Receive Date: 20220519
  Receipt Date: 20220519
  Transmission Date: 20220721
  Serious: No
  Sender: FDA-Public Use
  Company Number: US-BRISTOL-MYERS SQUIBB COMPANY-2022-019977

PATIENT
  Age: 69 Year
  Sex: Male
  Weight: 128.82 kg

DRUGS (1)
  1. REVLIMID [Suspect]
     Active Substance: LENALIDOMIDE
     Indication: Plasma cell myeloma
     Dosage: 5 MILLIGRAM, FREQ:- DAILY 1-14D Q21D
     Route: 048
     Dates: start: 20220308

REACTIONS (1)
  - Diarrhoea [Unknown]
